FAERS Safety Report 13256231 (Version 4)
Quarter: 2018Q1

REPORT INFORMATION
  Report Type: Spontaneous
  Country: IN (occurrence: IN)
  Receive Date: 20170221
  Receipt Date: 20180111
  Transmission Date: 20180508
  Serious: Yes (Hospitalization, Other)
  Sender: FDA-Public Use
  Company Number: IN-PFIZER INC-2017061910

PATIENT
  Age: 40 Year
  Sex: Female

DRUGS (17)
  1. SHELCAL [Concomitant]
     Dosage: 500 MG, 1X/DAY
  2. NUCOXIA [Concomitant]
     Active Substance: ETORICOXIB
     Indication: PAIN
     Dosage: 90 MG, 1X/DAY (AS NEEDED)
  3. FEMARA [Concomitant]
     Active Substance: LETROZOLE
     Dosage: UNK
  4. PALBACE [Suspect]
     Active Substance: PALBOCICLIB
     Indication: BREAST CANCER METASTATIC
     Dosage: 125 MG, 1X/DAY
     Route: 048
     Dates: start: 20170105
  5. LETROZOLE. [Concomitant]
     Active Substance: LETROZOLE
     Dosage: 2.5 MG, MONTHLY
  6. PROTEINEX [Concomitant]
     Dosage: UNK (3-3-3 TSF), 3X/DAY
  7. PALBACE [Suspect]
     Active Substance: PALBOCICLIB
     Dosage: 125 MG, CYCLIC (5 DAYS ON AND 2 DAYS OFF EVERY WEEK)
     Dates: start: 20171004
  8. HAEMUP [Concomitant]
     Dosage: 1 DF, 1X/DAY
  9. AUGMENTIN [Concomitant]
     Active Substance: AMOXICILLIN\CLAVULANATE POTASSIUM
     Dosage: 625 MG, 2X/DAY
  10. DUPHALAC [Concomitant]
     Active Substance: LACTULOSE
     Indication: CONSTIPATION
     Dosage: 15 ML, UNK (1-2 TIMES/DAY)
  11. PAN [Concomitant]
     Dosage: 40 MG, 2X/DAY (BEFORE FOOD)
  12. ETORICA [Concomitant]
     Indication: PAIN
     Dosage: 1 DF, AS NEEDED
  13. MORPHINE [Concomitant]
     Active Substance: MORPHINE
     Indication: PAIN
     Dosage: 1 DF, UNK (4-6 HOURLY)
  14. DOLO /00020001/ [Concomitant]
     Indication: PAIN
     Dosage: 650 MG, 3X/DAY
  15. EMESET [Concomitant]
     Active Substance: ONDANSETRON HYDROCHLORIDE
     Indication: VOMITING
     Dosage: 1 DF, AS NEEDED
  16. ZOLADEX [Concomitant]
     Active Substance: GOSERELIN ACETATE
     Dosage: 10.8 MG, UNK (3 MONTHLY)
     Route: 042
     Dates: start: 20161231
  17. ZOLEDRONATE [Concomitant]
     Active Substance: ZOLEDRONIC ACID
     Dosage: 4 MG, UNK
     Route: 042
     Dates: start: 20161231

REACTIONS (11)
  - Back pain [Recovering/Resolving]
  - Odynophagia [Unknown]
  - Epistaxis [Recovered/Resolved]
  - Fatigue [Unknown]
  - Dyspnoea [Recovered/Resolved]
  - Anaemia [Recovered/Resolved]
  - Oral pain [Unknown]
  - Mouth ulceration [Recovered/Resolved]
  - Weight decreased [Unknown]
  - Vomiting [Unknown]
  - Nausea [Unknown]
